FAERS Safety Report 11192936 (Version 3)
Quarter: 2015Q3

REPORT INFORMATION
  Report Type: Report from Study
  Country: TR (occurrence: TR)
  Receive Date: 20150616
  Receipt Date: 20150916
  Transmission Date: 20151125
  Serious: Yes (Other)
  Sender: FDA-Public Use
  Company Number: TR-BAYER-2015-345835

PATIENT
  Age: 39 Year
  Sex: Female

DRUGS (1)
  1. BETAFERON [Suspect]
     Active Substance: INTERFERON BETA-1B
     Indication: CLINICALLY ISOLATED SYNDROME
     Dosage: UNK
     Route: 058
     Dates: start: 20120213

REACTIONS (5)
  - Drug prescribing error [None]
  - Uveitis [Not Recovered/Not Resolved]
  - Uveitis [Not Recovered/Not Resolved]
  - Hypoaesthesia [None]
  - Hepatic enzyme increased [Not Recovered/Not Resolved]

NARRATIVE: CASE EVENT DATE: 20150511
